FAERS Safety Report 6422701-6 (Version None)
Quarter: 2009Q4

REPORT INFORMATION
  Report Type: 
  Country: None (occurrence: None)
  Receive Date: 20091102
  Receipt Date: 20091027
  Transmission Date: 20100525
  Serious: Yes (Life-Threatening, Hospitalization)
  Sender: FDA-Public Use
  Company Number: DE-BAYER-200933654GPV

PATIENT
  Age: 63 Year
  Sex: Female

DRUGS (1)
  1. BETAFERON [Suspect]
     Indication: MULTIPLE SCLEROSIS
     Dosage: LONG TERM TREATMENT
     Route: 058
     Dates: end: 20090927

REACTIONS (3)
  - MYOCARDIAL INFARCTION [None]
  - SEPTIC SHOCK [None]
  - VASCULAR GRAFT [None]
